FAERS Safety Report 10101480 (Version 1)
Quarter: 2014Q2

REPORT INFORMATION
  Report Type: Spontaneous
  Country: US (occurrence: None)
  Receive Date: 20140422
  Receipt Date: 20140422
  Transmission Date: 20141212
  Serious: Yes (Other)
  Sender: FDA-Public Use
  Company Number: 2014P103245

PATIENT
  Age: 42 Year
  Sex: Male

DRUGS (2)
  1. MYORISAN [Suspect]
     Dates: start: 20130218
  2. MYORISAN [Suspect]
     Dates: start: 20140325, end: 2014

REACTIONS (2)
  - Insomnia [None]
  - Ototoxicity [None]
